FAERS Safety Report 19859519 (Version 1)
Quarter: 2021Q3

REPORT INFORMATION
  Report Type: Spontaneous
  Country: DE (occurrence: DE)
  Receive Date: 20210920
  Receipt Date: 20210920
  Transmission Date: 20211014
  Serious: Yes (Hospitalization, Other)
  Sender: FDA-Public Use
  Company Number: DE-MYLANLABS-2021M1063066

PATIENT
  Age: 65 Year
  Sex: Male
  Weight: 84 kg

DRUGS (8)
  1. SYMBICORT [Suspect]
     Active Substance: BUDESONIDE\FORMOTEROL FUMARATE DIHYDRATE
     Dosage: UNK (160/4.5)
  2. SPIRIVA [Concomitant]
     Active Substance: TIOTROPIUM BROMIDE MONOHYDRATE
  3. SALBUTAMOL [Concomitant]
     Active Substance: ALBUTEROL
  4. FORMOTEROL [Suspect]
     Active Substance: FORMOTEROL
     Indication: CHRONIC OBSTRUCTIVE PULMONARY DISEASE
     Dosage: UNK (12 2X2)
     Route: 055
  5. NUCALA [Concomitant]
     Active Substance: MEPOLIZUMAB
     Dosage: UNK
  6. THEOPHYLLIN [Concomitant]
     Active Substance: THEOPHYLLINE ANHYDROUS
     Dosage: UNK
  7. BUDESONIDE MYLAN [Suspect]
     Active Substance: BUDESONIDE
     Indication: CHRONIC OBSTRUCTIVE PULMONARY DISEASE
     Dosage: UNK (400 2X1)
     Route: 055
  8. SYMBICORT [Suspect]
     Active Substance: BUDESONIDE\FORMOTEROL FUMARATE DIHYDRATE
     Indication: CHRONIC OBSTRUCTIVE PULMONARY DISEASE
     Dosage: UNK (320/9)
     Route: 055

REACTIONS (13)
  - Dehydration [Unknown]
  - Asthma [Unknown]
  - Pulmonary congestion [Unknown]
  - Emphysema [Unknown]
  - Eosinophil count increased [Unknown]
  - Lung disorder [Unknown]
  - Dyspnoea exertional [Recovering/Resolving]
  - Off label use [Unknown]
  - Dizziness [Unknown]
  - Adrenal mass [Unknown]
  - Intervertebral disc degeneration [Unknown]
  - Chronic obstructive pulmonary disease [Not Recovered/Not Resolved]
  - Vomiting [Unknown]
